FAERS Safety Report 4426617-6 (Version None)
Quarter: 2004Q3

REPORT INFORMATION
  Report Type: 
  Country: None (occurrence: None)
  Receive Date: 20040812
  Receipt Date: 20040812
  Transmission Date: 20050211
  Serious: Yes (Disabling)
  Sender: FDA-Public Use
  Company Number: None

PATIENT
  Age: 64 Year
  Sex: Female

DRUGS (1)
  1. ETANERCEPT [Suspect]
     Indication: ANKYLOSING SPONDYLITIS
     Dosage: 25 MG 2X / WK
     Dates: start: 20040421

REACTIONS (1)
  - OPTIC NEURITIS [None]
